FAERS Safety Report 5942427-2 (Version None)
Quarter: 2008Q4

REPORT INFORMATION
  Report Type: 
  Country: None (occurrence: None)
  Receive Date: 20081105
  Receipt Date: 20081029
  Transmission Date: 20090506
  Serious: Yes (Congenital Anomaly)
  Sender: FDA-Public Use
  Company Number: US-ALLERGAN-0813843US

PATIENT
  Sex: Female
  Weight: 3.175 kg

DRUGS (1)
  1. TAZORAC [Suspect]
     Indication: DRUG EXPOSURE DURING PREGNANCY
     Dosage: UNK, QHS
     Route: 064
     Dates: start: 20070601, end: 20070805

REACTIONS (4)
  - ATRIAL SEPTAL DEFECT [None]
  - PATENT DUCTUS ARTERIOSUS [None]
  - SUPRAVENTRICULAR EXTRASYSTOLES [None]
  - VENTRICULAR SEPTAL DEFECT [None]
